FAERS Safety Report 8994793 (Version 1)
Quarter: 2012Q4

REPORT INFORMATION
  Report Type: Spontaneous
  Country: US (occurrence: None)
  Receive Date: 20121228
  Receipt Date: 20121228
  Transmission Date: 20130627
  Serious: Yes (Other)
  Sender: FDA-Public Use
  Company Number: None

PATIENT
  Age: 52 Year
  Sex: Female

DRUGS (2)
  1. PROTONIX [Suspect]
     Indication: HEARTBURN
     Dosage: 60 MG 1 QD PO
     Route: 048
     Dates: start: 2004, end: 2012
  2. PROTONIX [Suspect]
     Indication: GERD
     Dosage: 60 MG 1 QD PO
     Route: 048
     Dates: start: 2004, end: 2012

REACTIONS (1)
  - Duodenal polyp [None]
